FAERS Safety Report 8522024-5 (Version None)
Quarter: 2012Q3

REPORT INFORMATION
  Report Type: 
  Country: None (occurrence: None)
  Receive Date: 20120719
  Receipt Date: 20120712
  Transmission Date: 20120928
  Serious: Yes (Disabling, Other)
  Sender: FDA-Public Use
  Company Number: US-009507513-1202USA03898

PATIENT

DRUGS (4)
  1. CALCIUM (UNSPECIFIED) [Concomitant]
  2. FOSAMAX [Suspect]
     Dosage: UNK
     Dates: start: 20000101
  3. FOSAMAX [Suspect]
     Indication: OSTEOPOROSIS
     Route: 048
     Dates: start: 20020101, end: 20080401
  4. ACTONEL [Suspect]
     Dosage: UNK
     Dates: start: 20000101

REACTIONS (18)
  - GINGIVAL INFECTION [None]
  - OSTEONECROSIS OF JAW [None]
  - DEVICE FAILURE [None]
  - INFECTION [None]
  - MALOCCLUSION [None]
  - HYPERCHOLESTEROLAEMIA [None]
  - GINGIVAL OEDEMA [None]
  - BREAST CANCER [None]
  - BONE LOSS [None]
  - OSTEOMYELITIS [None]
  - OSTEOARTHRITIS [None]
  - CONCUSSION [None]
  - GINGIVITIS [None]
  - TOOTH EXTRACTION [None]
  - JAW DISORDER [None]
  - GINGIVAL ERYTHEMA [None]
  - TOOTH DISORDER [None]
  - ORAL CAVITY FISTULA [None]
